FAERS Safety Report 12721476 (Version 1)
Quarter: 2016Q3

REPORT INFORMATION
  Report Type: Other
  Country: US (occurrence: US)
  Receive Date: 20160907
  Receipt Date: 20160907
  Transmission Date: 20161109
  Serious: No
  Sender: FDA-Public Use
  Company Number: US-COL_21999_2016

PATIENT
  Age: 66 Year
  Sex: Female

DRUGS (1)
  1. COLGATE TOTAL FRESH MINT STRIPE [Suspect]
     Active Substance: SODIUM FLUORIDE\TRICLOSAN
     Indication: PRODUCT USED FOR UNKNOWN INDICATION
     Dosage: PEA SIZED AMOUNT/ AT LEAST BID/
     Route: 048
     Dates: start: 20160128

REACTIONS (1)
  - Dry mouth [Not Recovered/Not Resolved]

NARRATIVE: CASE EVENT DATE: 20160129
